FAERS Safety Report 19823649 (Version 2)
Quarter: 2021Q3

REPORT INFORMATION
  Report Type: Report from Study
  Country: US (occurrence: US)
  Receive Date: 20210913
  Receipt Date: 20210924
  Transmission Date: 20211014
  Serious: Yes (Other)
  Sender: FDA-Public Use
  Company Number: US-ALLERGAN-2131934US

PATIENT
  Sex: Female

DRUGS (1)
  1. BOTULINUM TOXIN TYPE A ? GENERAL (9060X) [Suspect]
     Active Substance: BOTULINUM TOXIN TYPE A
     Indication: MIGRAINE
     Dosage: UNK UNK, SINGLE
     Dates: start: 20210812, end: 20210812

REACTIONS (13)
  - Nerve compression [Unknown]
  - Fall [Unknown]
  - Dizziness [Unknown]
  - Feeling abnormal [Unknown]
  - Fear [Unknown]
  - Back pain [Recovering/Resolving]
  - Visual impairment [Unknown]
  - Adverse event [Unknown]
  - Back disorder [Unknown]
  - Pallor [Unknown]
  - Loss of consciousness [Unknown]
  - Exostosis [Recovering/Resolving]
  - Nausea [Unknown]

NARRATIVE: CASE EVENT DATE: 20210812
